FAERS Safety Report 8933612 (Version 3)
Quarter: 2012Q4

REPORT INFORMATION
  Report Type: 
  Country: US (occurrence: US)
  Receive Date: 20121129
  Receipt Date: 20121221
  Transmission Date: 20130627
  Serious: Yes (Other)
  Sender: FDA-Public Use
  Company Number: US-009507513-1211USA008843

PATIENT
  Age: 55 Year
  Sex: Male
  Weight: 75.19 kg

DRUGS (6)
  1. BOCEPREVIR [Suspect]
     Indication: HIV INFECTION
     Dosage: 800 mg, q8h
     Route: 048
     Dates: start: 20121025, end: 20121120
  2. BOCEPREVIR [Suspect]
     Dosage: UNK
     Dates: start: 20121130
  3. RIBAVIRIN [Suspect]
     Indication: HIV INFECTION
     Dosage: 400 mg, bid
     Route: 048
     Dates: start: 20120927, end: 20121120
  4. RIBAVIRIN [Suspect]
     Dosage: UNK
     Route: 048
     Dates: start: 20121130
  5. PEGINTERFERON ALFA-2B [Suspect]
     Indication: HIV INFECTION
     Dosage: 120 Microgram, qw
     Route: 058
     Dates: start: 20120927, end: 20121120
  6. PEGINTERFERON ALFA-2B [Suspect]
     Dosage: 80 UNK, UNK
     Route: 058
     Dates: start: 20121130

REACTIONS (1)
  - Pancytopenia [Recovered/Resolved]
